FAERS Safety Report 11004939 (Version 1)
Quarter: 2015Q2

REPORT INFORMATION
  Report Type: Spontaneous
  Country: US (occurrence: None)
  Receive Date: 20150408
  Receipt Date: 20150408
  Transmission Date: 20150821
  Serious: Yes (Hospitalization)
  Sender: FDA-Public Use
  Company Number: None

PATIENT
  Age: 50 Year
  Sex: Male
  Weight: 105.24 kg

DRUGS (1)
  1. CARBOPLATIN. [Suspect]
     Active Substance: CARBOPLATIN

REACTIONS (7)
  - Fatigue [None]
  - Arthralgia [None]
  - Decreased appetite [None]
  - Hyponatraemia [None]
  - Headache [None]
  - Visual impairment [None]
  - Diarrhoea [None]

NARRATIVE: CASE EVENT DATE: 20150406
